FAERS Safety Report 12734433 (Version 4)
Quarter: 2017Q2

REPORT INFORMATION
  Report Type: Spontaneous
  Country: NO (occurrence: NO)
  Receive Date: 20160912
  Receipt Date: 20170403
  Transmission Date: 20170830
  Serious: Yes (Death, Other)
  Sender: FDA-Public Use
  Company Number: NO-ASTRAZENECA-2016SE95821

PATIENT
  Age: 55 Year
  Sex: Female
  Weight: 76 kg

DRUGS (12)
  1. BRICANYL [Suspect]
     Active Substance: TERBUTALINE SULFATE
     Indication: PRODUCT USED FOR UNKNOWN INDICATION
     Dosage: 1X2-4
     Route: 065
     Dates: start: 20040128, end: 20040428
  2. GLUCOPHAGE [Suspect]
     Active Substance: METFORMIN HYDROCHLORIDE
     Indication: TYPE 2 DIABETES MELLITUS
     Dosage: NON AZ PRODUCT, (1  GM,3 IN- 2)
     Route: 065
  3. SOMAC [Concomitant]
     Active Substance: PANTOPRAZOLE SODIUM
     Dates: start: 20160824
  4. KALIUMKLORID [Concomitant]
  5. GLUCOPHAGE [Suspect]
     Active Substance: METFORMIN HYDROCHLORIDE
     Indication: TYPE 2 DIABETES MELLITUS
     Dosage: NON AZ PRODUCT, 1 G THREE TIMES A DAY
     Route: 065
  6. IBUX [Concomitant]
     Active Substance: IBUPROFEN
     Dosage: 600 MG X 3, AS REQUIRED
  7. CENTYL MED KALIUM [Concomitant]
     Dosage: 2.5/573 MG X1
  8. TRIOBE [Concomitant]
     Dosage: 1X1
  9. AMARYL [Concomitant]
     Active Substance: GLIMEPIRIDE
     Indication: TYPE 2 DIABETES MELLITUS
  10. FORXIGA [Suspect]
     Active Substance: DAPAGLIFLOZIN
     Indication: TYPE 2 DIABETES MELLITUS
     Route: 048
     Dates: start: 20141111
  11. BYDUREON [Suspect]
     Active Substance: EXENATIDE
     Indication: TYPE 2 DIABETES MELLITUS
     Route: 065
     Dates: start: 20160622
  12. LEVAXIN [Concomitant]
     Active Substance: LEVOTHYROXINE SODIUM

REACTIONS (23)
  - Dysuria [Unknown]
  - Headache [Unknown]
  - Diarrhoea [Unknown]
  - Pain in extremity [Unknown]
  - Chondromalacia [Unknown]
  - Off label use [Unknown]
  - Arthralgia [Unknown]
  - Neck pain [Unknown]
  - Cough [Unknown]
  - Vomiting [Unknown]
  - Fatigue [Unknown]
  - Tooth disorder [Unknown]
  - Pain [Unknown]
  - Dyspepsia [Unknown]
  - Acute kidney injury [Fatal]
  - Pain in extremity [Unknown]
  - Sinus tachycardia [Unknown]
  - Synovial cyst [Unknown]
  - Back pain [Unknown]
  - Type 2 diabetes mellitus [Unknown]
  - Toxicity to various agents [Fatal]
  - Nausea [Unknown]
  - Urinary tract infection [Unknown]

NARRATIVE: CASE EVENT DATE: 20150216
